FAERS Safety Report 10960776 (Version 1)
Quarter: 2015Q1

REPORT INFORMATION
  Report Type: Spontaneous
  Country: US (occurrence: None)
  Receive Date: 20150326
  Receipt Date: 20150326
  Transmission Date: 20150721
  Serious: Yes (Other)
  Sender: FDA-Public Use
  Company Number: None

PATIENT
  Age: 43 Year
  Sex: Female
  Weight: 77.57 kg

DRUGS (2)
  1. BOTOX [Suspect]
     Active Substance: ONABOTULINUMTOXINA
     Indication: MIGRAINE
     Dates: start: 20150105, end: 20150323
  2. BOTOX [Concomitant]
     Active Substance: ONABOTULINUMTOXINA

REACTIONS (5)
  - Pyrexia [None]
  - Pruritus [None]
  - Cough [None]
  - Dysphonia [None]
  - Erythema multiforme [None]

NARRATIVE: CASE EVENT DATE: 20150325
